FAERS Safety Report 12309944 (Version 1)
Quarter: 2016Q2

REPORT INFORMATION
  Report Type: Spontaneous
  Country: US (occurrence: US)
  Receive Date: 20160427
  Receipt Date: 20160427
  Transmission Date: 20160815
  Serious: No
  Sender: FDA-Public Use
  Company Number: US-GLAXOSMITHKLINE-US2016046178

PATIENT
  Age: 56 Year
  Sex: Male

DRUGS (2)
  1. NICODERM CQ [Suspect]
     Active Substance: NICOTINE
     Indication: SMOKING CESSATION THERAPY
     Dosage: UNK
     Dates: start: 2001
  2. NICODERM CQ [Suspect]
     Active Substance: NICOTINE
     Indication: SMOKING CESSATION THERAPY
     Dosage: 21 MG, UNK
     Dates: end: 20160404

REACTIONS (6)
  - Nicotine dependence [Not Recovered/Not Resolved]
  - Dizziness [Unknown]
  - Overdose [Unknown]
  - Euphoric mood [Unknown]
  - Drug ineffective [Unknown]
  - Wrong technique in product usage process [Unknown]
